FAERS Safety Report 16205814 (Version 2)
Quarter: 2019Q4

REPORT INFORMATION
  Report Type: Spontaneous
  Country: US (occurrence: US)
  Receive Date: 20190417
  Receipt Date: 20191216
  Transmission Date: 20200122
  Serious: Yes (Hospitalization)
  Sender: FDA-Public Use
  Company Number: US-SUN PHARMACEUTICAL INDUSTRIES LTD-2019R1-205490

PATIENT
  Age: 69 Year
  Sex: Male

DRUGS (1)
  1. DEXAMETHASONE. [Suspect]
     Active Substance: DEXAMETHASONE
     Indication: PAIN
     Dosage: UNK, 12.5 MG [TRANSFORAMINAL EPIDURAL STEROID INJECTION (TFESI)]
     Route: 008

REACTIONS (1)
  - Hyperglycaemic hyperosmolar nonketotic syndrome [Recovering/Resolving]
